FAERS Safety Report 7303376-0 (Version None)
Quarter: 2011Q1

REPORT INFORMATION
  Report Type: 
  Country: None (occurrence: None)
  Receive Date: 20110221
  Receipt Date: 20110209
  Transmission Date: 20110831
  Serious: Yes (Hospitalization)
  Sender: FDA-Public Use
  Company Number: US-ELI_LILLY_AND_COMPANY-US201102003235

PATIENT
  Age: 19 Year
  Sex: Female

DRUGS (8)
  1. ZYPREXA [Suspect]
     Indication: SCHIZOAFFECTIVE DISORDER
     Dosage: 20 MG, DAILY (1/D)
     Dates: start: 20100401
  2. MINOCYCLINE HCL [Concomitant]
  3. ZYPREXA [Suspect]
     Dosage: 30 MG, DAILY (1/D)
     Dates: start: 20110106
  4. TRILEPTAL [Concomitant]
  5. LEXAPRO [Concomitant]
  6. LORAZEPAM [Concomitant]
  7. RISPERIDONE [Concomitant]
  8. ZYPREXA [Suspect]
     Dosage: 10 MG, DAILY (1/D)
     Dates: start: 20101201

REACTIONS (5)
  - DELUSION [None]
  - URINARY INCONTINENCE [None]
  - WEIGHT INCREASED [None]
  - HALLUCINATION, AUDITORY [None]
  - ALCOHOL POISONING [None]
